FAERS Safety Report 13106613 (Version 1)
Quarter: 2017Q1

REPORT INFORMATION
  Report Type: Spontaneous
  Country: US (occurrence: US)
  Receive Date: 20170111
  Receipt Date: 20170111
  Transmission Date: 20170428
  Serious: Yes (Hospitalization)
  Sender: FDA-Public Use
  Company Number: US-IMPAX LABORATORIES, INC-2016-IPXL-01446

PATIENT
  Age: 85 Year
  Sex: Female

DRUGS (1)
  1. RYTARY [Suspect]
     Active Substance: CARBIDOPA\LEVODOPA
     Indication: PRODUCT USED FOR UNKNOWN INDICATION
     Dosage: (36.25/145) TOTAL DAILY DOSE:108.74/435MG ONE CAPSULE EVERY 8 HOURS
     Route: 048
     Dates: start: 201610

REACTIONS (7)
  - Fall [Unknown]
  - Balance disorder [Unknown]
  - Drug dose omission [Unknown]
  - Incoherent [Unknown]
  - Contusion [Unknown]
  - Hallucination [Unknown]
  - Hypersomnia [Unknown]

NARRATIVE: CASE EVENT DATE: 201610
